FAERS Safety Report 6380390-3 (Version None)
Quarter: 2009Q3

REPORT INFORMATION
  Report Type: 
  Country: None (occurrence: None)
  Receive Date: 20090929
  Receipt Date: 20090923
  Transmission Date: 20100115
  Serious: Yes (Death, Other)
  Sender: FDA-Public Use
  Company Number: GB-AVENTIS-200920883GDDC

PATIENT
  Sex: Female

DRUGS (4)
  1. DOCETAXEL [Suspect]
     Dosage: DOSE: UNK
     Route: 042
  2. FLUOROURACIL [Concomitant]
     Dosage: DOSE: UNK
  3. EPIRUBICIN [Concomitant]
     Dosage: DOSE: UNK
  4. CYCLOPHOSPHAMIDE [Concomitant]
     Dosage: DOSE: UNK

REACTIONS (4)
  - COLITIS [None]
  - DEATH [None]
  - FEBRILE NEUTROPENIA [None]
  - INFECTION [None]
